FAERS Safety Report 25490536 (Version 1)
Quarter: 2025Q2

REPORT INFORMATION
  Report Type: Report from Study
  Country: US (occurrence: US)
  Receive Date: 20250627
  Receipt Date: 20250627
  Transmission Date: 20250717
  Serious: Yes (Other)
  Sender: PFIZER
  Company Number: US-PFIZER INC-PV202500052170

PATIENT
  Age: 62 Year
  Sex: Female

DRUGS (4)
  1. IBRANCE [Suspect]
     Active Substance: PALBOCICLIB
     Indication: Breast cancer metastatic
     Route: 048
     Dates: start: 20250109, end: 2025
  2. IBRANCE [Suspect]
     Active Substance: PALBOCICLIB
     Route: 048
     Dates: start: 2025
  3. FULVESTRANT [Concomitant]
     Active Substance: FULVESTRANT
     Indication: Breast cancer metastatic
     Dates: start: 20250109
  4. ITOVEBI [Concomitant]
     Active Substance: INAVOLISIB
     Indication: Breast cancer metastatic

REACTIONS (5)
  - Osteonecrosis of jaw [Unknown]
  - Neutropenia [Unknown]
  - White blood cell count decreased [Recovering/Resolving]
  - Alopecia [Unknown]
  - Rash [Unknown]

NARRATIVE: CASE EVENT DATE: 20250101
